FAERS Safety Report 25542535 (Version 1)
Quarter: 2025Q3

REPORT INFORMATION
  Report Type: Spontaneous
  Country: US (occurrence: US)
  Receive Date: 20250711
  Receipt Date: 20250711
  Transmission Date: 20251020
  Serious: No
  Sender: ELI LILLY AND COMPANY
  Company Number: US-ELI_LILLY_AND_COMPANY-US202507007420

PATIENT
  Age: 53 Year
  Sex: Female

DRUGS (1)
  1. VERZENIO [Suspect]
     Active Substance: ABEMACICLIB
     Indication: Malignant nipple neoplasm
     Dosage: 1 DOSAGE FORM, BID
     Route: 048
     Dates: start: 20250613

REACTIONS (5)
  - Insomnia [Unknown]
  - Product dose omission issue [Unknown]
  - Joint swelling [Unknown]
  - Swelling [Unknown]
  - Memory impairment [Unknown]

NARRATIVE: CASE EVENT DATE: 20250601
